FAERS Safety Report 11942063 (Version 2)
Quarter: 2016Q1

REPORT INFORMATION
  Report Type: Spontaneous
  Country: US (occurrence: US)
  Receive Date: 20160124
  Receipt Date: 20160125
  Transmission Date: 20160526
  Serious: No
  Sender: FDA-Public Use
  Company Number: US-HOSPIRA-2781835

PATIENT
  Age: 40 Year
  Sex: Female
  Weight: 68.18 kg

DRUGS (1)
  1. PRECEDEX [Suspect]
     Active Substance: DEXMEDETOMIDINE HYDROCHLORIDE
     Indication: PRODUCT USED FOR UNKNOWN INDICATION
     Dosage: NOT APPLICABLE, NOT APPLICABLE, NOT APPLICABLE
     Route: 050

REACTIONS (4)
  - Accident at work [Recovered/Resolved]
  - Product closure removal difficult [Recovered/Resolved]
  - Laceration [Recovered/Resolved]
  - Product closure issue [Recovered/Resolved]

NARRATIVE: CASE EVENT DATE: 20150304
